FAERS Safety Report 6134287-4 (Version None)
Quarter: 2009Q1

REPORT INFORMATION
  Report Type: 
  Country: None (occurrence: None)
  Receive Date: 20090325
  Receipt Date: 20090317
  Transmission Date: 20090719
  Serious: Yes (Hospitalization, Other)
  Sender: FDA-Public Use
  Company Number: PAR_02891_2009

PATIENT
  Age: 79 Year

DRUGS (8)
  1. ALLOPURINOL [Suspect]
     Indication: HYPERURICAEMIA
     Dosage: (100 MG QD ORAL)
     Route: 048
     Dates: end: 20081118
  2. NIFEDIPINE [Suspect]
     Indication: HYPERTENSION
     Dosage: (20 MG QD ORAL)
     Route: 048
     Dates: end: 20081120
  3. BELOC ZOK (BELOC ZOK - METOPROLOL SUCCINATE) (NOT SPECIFIED) [Suspect]
     Indication: HYPERTENSION
     Dosage: (200 MG ORAL)
     Route: 048
     Dates: end: 20081119
  4. DIGITOXIN INJ [Suspect]
     Indication: CARDIAC FAILURE
     Dosage: (0.07 MG ORAL)
     Route: 048
     Dates: end: 20081119
  5. RASILEZ - ALISKIREN [Suspect]
     Indication: HYPERTENSION
     Dosage: (300 MG QD ORAL)
     Route: 048
     Dates: start: 20080801
  6. TORSEMIDE [Suspect]
     Indication: OEDEMA
     Dosage: (10 MG ORAL)
     Route: 048
  7. ACTRAPHANE [Concomitant]
  8. ASPIRIN [Concomitant]

REACTIONS (13)
  - BLOOD CREATINE INCREASED [None]
  - BLOOD FIBRINOGEN INCREASED [None]
  - BLOOD PRESSURE SYSTOLIC INCREASED [None]
  - BRADYCARDIA [None]
  - CARDIAC FAILURE [None]
  - CARDIOACTIVE DRUG LEVEL INCREASED [None]
  - DIARRHOEA [None]
  - GENERAL PHYSICAL CONDITION ABNORMAL [None]
  - OEDEMA PERIPHERAL [None]
  - PLATELET COUNT INCREASED [None]
  - PLEURAL EFFUSION [None]
  - WEIGHT DECREASED [None]
  - WHITE BLOOD CELL COUNT INCREASED [None]
